FAERS Safety Report 22037051 (Version 1)
Quarter: 2023Q1

REPORT INFORMATION
  Report Type: Spontaneous
  Country: GB (occurrence: GB)
  Receive Date: 20230226
  Receipt Date: 20230226
  Transmission Date: 20230418
  Serious: Yes (Hospitalization)
  Sender: FDA-Public Use
  Company Number: None

PATIENT
  Age: 61 Year
  Sex: Male

DRUGS (9)
  1. OMEPRAZOLE [Suspect]
     Active Substance: OMEPRAZOLE
     Dosage: OMEPRAZOLE 10MG DISPERSIBLE GASTRO-RESISTANT TABLETS
  2. CALCIUM CARBONATE\CHOLECALCIFEROL [Concomitant]
     Active Substance: CALCIUM CARBONATE\CHOLECALCIFEROL
     Dosage: TWICE A DAY IN THE MORNING AND AT NIGHT
  3. OMEPRAZOLE [Concomitant]
     Active Substance: OMEPRAZOLE
     Dosage: 40MG GASTRO-RESISTANT CAPSULES ONE TWICE PER DAY
     Dates: start: 20230209
  4. ACETAMINOPHEN [Concomitant]
     Active Substance: ACETAMINOPHEN
     Dosage: 250MG/5ML ORAL SUSPENSION
     Dates: end: 20230209
  5. ALBUTEROL [Concomitant]
     Active Substance: ALBUTEROL
     Dosage: NA
  6. SUCRALFATE [Concomitant]
     Active Substance: SUCRALFATE
     Dosage: 1G/5ML ORAL SUSPENSION
     Dates: end: 20230209
  7. THIAMINE [Concomitant]
     Active Substance: THIAMINE
     Dosage: 100MG TABLETS
  8. ENSURE [Concomitant]
     Active Substance: AMINO ACIDS\DEXTROSE\ELECTROLYTES NOS\SOYBEAN OIL\VITAMINS
     Dosage: TWICE A DAY IN THE MORNING AND AT NIGHT
  9. TRELEGY ELLIPTA [Concomitant]
     Active Substance: FLUTICASONE FUROATE\UMECLIDINIUM BROMIDE\VILANTEROL TRIFENATATE
     Dosage: TWICE A DAY IN THE MORNING AND AT NIGHT

REACTIONS (1)
  - Hypomagnesaemia [Unknown]
